FAERS Safety Report 9385007 (Version 2)
Quarter: 2013Q3

REPORT INFORMATION
  Report Type: Spontaneous
  Country: US (occurrence: US)
  Receive Date: 20130705
  Receipt Date: 20130816
  Transmission Date: 20140515
  Serious: Yes (Other)
  Sender: FDA-Public Use
  Company Number: US-GLAXOSMITHKLINE-A1023435A

PATIENT
  Age: 64 Year
  Sex: Female

DRUGS (11)
  1. BENLYSTA [Suspect]
     Indication: SYSTEMIC LUPUS ERYTHEMATOSUS
     Dosage: 120MG CYCLIC
     Route: 042
     Dates: start: 20121001
  2. PLAQUENIL [Concomitant]
  3. CLIMARA [Concomitant]
  4. CYMBALTA [Concomitant]
  5. VERAPAMIL [Concomitant]
  6. LEVOTHYROXINE [Concomitant]
  7. NEURONTIN [Concomitant]
  8. DOXYCYCLINE [Concomitant]
  9. PROTONIX [Concomitant]
  10. BABY ASPIRIN [Concomitant]
  11. COLACE [Concomitant]

REACTIONS (9)
  - Hot flush [Recovered/Resolved]
  - Night sweats [Recovered/Resolved]
  - Chills [Recovered/Resolved]
  - Herpes zoster [Recovered/Resolved]
  - Rash pruritic [Not Recovered/Not Resolved]
  - Vibratory sense increased [Recovered/Resolved]
  - Muscular weakness [Recovered/Resolved]
  - Fatigue [Recovered/Resolved]
  - Dermatitis [Not Recovered/Not Resolved]
